FAERS Safety Report 5919917-1 (Version None)
Quarter: 2008Q4

REPORT INFORMATION
  Report Type: 
  Country: None (occurrence: None)
  Receive Date: 20081015
  Receipt Date: 20081007
  Transmission Date: 20090506
  Serious: Yes (Other)
  Sender: FDA-Public Use
  Company Number: NL-MERCK-0810NLD00006

PATIENT
  Age: 69 Year
  Sex: Male
  Weight: 95 kg

DRUGS (1)
  1. VYTORIN [Suspect]
     Route: 048
     Dates: start: 20070623, end: 20080915

REACTIONS (1)
  - GASTRIC CANCER [None]
